FAERS Safety Report 6663256-0 (Version None)
Quarter: 2010Q2

REPORT INFORMATION
  Report Type: 
  Country: None (occurrence: None)
  Receive Date: 20100401
  Receipt Date: 20100324
  Transmission Date: 20101027
  Serious: Yes (Other)
  Sender: FDA-Public Use
  Company Number: US-BAYER-201017510NA

PATIENT
  Age: 60 Year
  Sex: Female

DRUGS (1)
  1. ULTRAVIST 370 [Suspect]
     Indication: ANGIOGRAM
     Dosage: TOTAL DAILY DOSE: 80 ML  UNIT DOSE: 100 ML
     Route: 042
     Dates: start: 20100324, end: 20100324

REACTIONS (2)
  - DYSPNOEA [None]
  - PRURITUS [None]
